FAERS Safety Report 16798878 (Version 1)
Quarter: 2019Q3

REPORT INFORMATION
  Report Type: Spontaneous
  Country: US (occurrence: US)
  Receive Date: 20190912
  Receipt Date: 20190912
  Transmission Date: 20191005
  Serious: No
  Sender: FDA-Public Use
  Company Number: US-009507513-1909USA003125

PATIENT
  Age: 33 Year
  Sex: Female

DRUGS (5)
  1. LEUPROLIDE [Concomitant]
     Active Substance: LEUPROLIDE
  2. OVIDREL [Concomitant]
     Active Substance: CHORIOGONADOTROPIN ALFA
  3. PROGESTERONE. [Concomitant]
     Active Substance: PROGESTERONE
  4. FOLLISTIM AQ [Suspect]
     Active Substance: FOLLITROPIN
     Indication: INFERTILITY FEMALE
     Dosage: 150 UNITS, QPM
     Route: 058
     Dates: start: 20190829
  5. MENOPUR [Concomitant]
     Active Substance: FOLLITROPIN\LUTEINIZING HORMONE

REACTIONS (1)
  - Nasopharyngitis [Unknown]

NARRATIVE: CASE EVENT DATE: 20190904
